FAERS Safety Report 5933359-4 (Version None)
Quarter: 2008Q4

REPORT INFORMATION
  Report Type: 
  Country: None (occurrence: None)
  Receive Date: 20081028
  Receipt Date: 20081024
  Transmission Date: 20090506
  Serious: Yes (Hospitalization)
  Sender: FDA-Public Use
  Company Number: FR-PFIZER INC-2008089548

PATIENT
  Sex: Male

DRUGS (3)
  1. ARTHROTEC [Suspect]
     Dates: start: 20080901, end: 20080901
  2. OLMESARTAN MEDOXOMIL [Suspect]
     Indication: HYPERTENSION
     Dates: start: 20080615, end: 20080917
  3. GLUCOPHAGE [Suspect]
     Dosage: DAILY DOSE:2GRAM
     Route: 048

REACTIONS (1)
  - THROMBOCYTOPENIC PURPURA [None]
